FAERS Safety Report 9640681 (Version 1)
Quarter: 2013Q4

REPORT INFORMATION
  Report Type: Report from Study
  Country: US (occurrence: US)
  Receive Date: 20131023
  Receipt Date: 20131023
  Transmission Date: 20140711
  Serious: No
  Sender: FDA-Public Use
  Company Number: US-ABBVIE-13P-163-1154401-00

PATIENT
  Age: 38 Year
  Sex: Female

DRUGS (4)
  1. LUPRON DEPOT [Suspect]
     Indication: ENDOMETRIOSIS
     Route: 030
     Dates: start: 201307
  2. TOXODERA [Concomitant]
     Indication: MULTIPLE SCLEROSIS
  3. IMIPRAMINE [Concomitant]
     Indication: MIGRAINE
  4. CODEINE [Concomitant]
     Indication: PRODUCT USED FOR UNKNOWN INDICATION

REACTIONS (2)
  - Blood pressure increased [Recovering/Resolving]
  - Migraine [Recovered/Resolved]
